FAERS Safety Report 4802667-2 (Version None)
Quarter: 2005Q4

REPORT INFORMATION
  Report Type: 
  Country: None (occurrence: None)
  Receive Date: 20051014
  Receipt Date: 20050711
  Transmission Date: 20060501
  Serious: Yes (Other)
  Sender: FDA-Public Use
  Company Number: 2005100174

PATIENT
  Age: 67 Year
  Sex: Female
  Weight: 69.4003 kg

DRUGS (4)
  1. NEURONTIN [Suspect]
     Indication: DIABETIC NEUROPATHY
     Dosage: 900 MG (300 MG, 3 IN 1 D)
     Dates: end: 20050101
  2. SYNTHROID [Concomitant]
  3. LISINOPRIL [Concomitant]
  4. MINOCYCLINE HCL [Concomitant]

REACTIONS (1)
  - SUICIDAL IDEATION [None]
